FAERS Safety Report 8608172-X (Version None)
Quarter: 2012Q3

REPORT INFORMATION
  Report Type: 
  Country: None (occurrence: None)
  Receive Date: 20120821
  Receipt Date: 20120403
  Transmission Date: 20120928
  Serious: No
  Sender: FDA-Public Use
  Company Number: US-TEVA-331712USA

PATIENT
  Sex: Female

DRUGS (1)
  1. FLUCONAZOLE [Suspect]
     Indication: FUNGAL INFECTION
     Dosage: 150 MILLIGRAM DAILY;
     Route: 048
     Dates: start: 20120331, end: 20120331

REACTIONS (11)
  - FEELING ABNORMAL [None]
  - HEART RATE IRREGULAR [None]
  - HYPOAESTHESIA [None]
  - PARAESTHESIA [None]
  - CHEST PAIN [None]
  - DIZZINESS [None]
  - MIGRAINE [None]
  - MUSCLE SPASMS [None]
  - BACK PAIN [None]
  - INSOMNIA [None]
  - PAIN IN EXTREMITY [None]
